FAERS Safety Report 11528533 (Version 2)
Quarter: 2021Q2

REPORT INFORMATION
  Report Type: Spontaneous
  Country: CA (occurrence: CA)
  Receive Date: 20150921
  Receipt Date: 20210405
  Transmission Date: 20210716
  Serious: Yes (Hospitalization, Other)
  Sender: FDA-Public Use
  Company Number: CA-UCBSA-2015029368

PATIENT
  Age: 68 Year
  Sex: Male

DRUGS (9)
  1. APO?VALPROIC [Suspect]
     Active Substance: VALPROIC ACID
     Indication: TONIC CONVULSION
     Dosage: 650 MG, 4X/DAY (QID)
  2. PHENYTOIN [PHENYTOIN SODIUM] [Suspect]
     Active Substance: PHENYTOIN SODIUM
     Dosage: 125 MG, ONCE DAILY (QD)
  3. 5?HTP [OXITRIPTAN] [Suspect]
     Active Substance: OXITRIPTAN
     Indication: TONIC CONVULSION
     Dosage: 400 MG, 3X/DAY (TID)
  4. VALPROIC ACID [VALPROATE SODIUM] [Suspect]
     Active Substance: VALPROATE SODIUM
     Indication: TONIC CONVULSION
     Dosage: 650 MG, 4X/DAY (QID)
  5. CARBIDOPA. [Suspect]
     Active Substance: CARBIDOPA
     Indication: PROPHYLAXIS
     Dosage: 25MG
  6. CLONAZEPAM. [Concomitant]
     Active Substance: CLONAZEPAM
     Indication: PRODUCT USED FOR UNKNOWN INDICATION
     Dosage: 1 MILLIGRAM, 2X/DAY (BID)
  7. KEPPRA [Suspect]
     Active Substance: LEVETIRACETAM
     Indication: TONIC CONVULSION
     Dosage: 1500 MG, 2X/DAY (BID)
  8. PHENYTOIN [PHENYTOIN SODIUM] [Suspect]
     Active Substance: PHENYTOIN SODIUM
     Indication: TONIC CONVULSION
     Dosage: 75 MG, ONCE DAILY (QD)
  9. CARBIDOPA. [Suspect]
     Active Substance: CARBIDOPA
     Indication: GASTROINTESTINAL DISORDER

REACTIONS (3)
  - Serotonin syndrome [Unknown]
  - Myoclonus [Unknown]
  - Somnolence [Unknown]
